FAERS Safety Report 9713938 (Version 1)
Quarter: 2013Q4

REPORT INFORMATION
  Report Type: Spontaneous
  Country: US (occurrence: US)
  Receive Date: 20131126
  Receipt Date: 20131126
  Transmission Date: 20140711
  Serious: Yes (Other)
  Sender: FDA-Public Use
  Company Number: US-GILEAD-2008-0018193

PATIENT
  Age: 40 Year
  Sex: Male

DRUGS (11)
  1. LETAIRIS [Suspect]
     Indication: PULMONARY ARTERIAL HYPERTENSION
     Route: 048
     Dates: start: 20080811, end: 20080829
  2. VASOTEC [Concomitant]
     Indication: HYPERTENSION
     Route: 048
  3. DIGOXIN [Concomitant]
     Indication: CARDIAC DISORDER
     Route: 048
  4. FUROSEMIDE [Concomitant]
     Indication: SWELLING
     Route: 048
  5. FUROSEMIDE [Concomitant]
     Indication: HYPERTENSION
  6. SPIRONOLACTONE [Concomitant]
     Indication: SWELLING
     Route: 048
  7. SPIRONOLACTONE [Concomitant]
     Indication: HYPERTENSION
  8. VIAGRA [Concomitant]
     Indication: PULMONARY ARTERIAL HYPERTENSION
     Route: 048
  9. REMODULIN [Concomitant]
     Indication: PULMONARY ARTERIAL HYPERTENSION
     Route: 042
  10. FOSAMAX [Concomitant]
     Indication: OSTEOPOROSIS
     Route: 048
  11. COUMADIN [Concomitant]
     Indication: ANTICOAGULANT THERAPY
     Route: 048

REACTIONS (2)
  - Dyspnoea [Unknown]
  - Local swelling [Unknown]
